FAERS Safety Report 7271672-1 (Version None)
Quarter: 2011Q1

REPORT INFORMATION
  Report Type: 
  Country: None (occurrence: None)
  Receive Date: 20110203
  Receipt Date: 20110127
  Transmission Date: 20110831
  Serious: Yes (Other)
  Sender: FDA-Public Use
  Company Number: DE-JNJFOC-20101204460

PATIENT
  Sex: Male

DRUGS (4)
  1. HALDOL [Suspect]
     Indication: NAUSEA
     Route: 058
  2. HALDOL [Suspect]
     Indication: ANTIEMETIC SUPPORTIVE CARE
     Route: 058
  3. FENTANYL [Concomitant]
     Indication: PAIN
     Route: 062
  4. NOVALGIN [Concomitant]
     Indication: PAIN
     Route: 054

REACTIONS (6)
  - INCORRECT ROUTE OF DRUG ADMINISTRATION [None]
  - ARRHYTHMIA [None]
  - PRODUCT PACKAGING ISSUE [None]
  - ACCIDENTAL OVERDOSE [None]
  - POISONING [None]
  - PARKINSONISM [None]
